FAERS Safety Report 8990778 (Version 3)
Quarter: 2013Q1

REPORT INFORMATION
  Report Type: Spontaneous
  Country: JP (occurrence: JP)
  Receive Date: 20121228
  Receipt Date: 20130119
  Transmission Date: 20140127
  Serious: Yes (Hospitalization)
  Sender: FDA-Public Use
  Company Number: JP-009507513-1212JPN010731

PATIENT
  Age: 63 Year
  Sex: Male
  Weight: 55 kg

DRUGS (10)
  1. PEGINTRON [Suspect]
     Indication: CHRONIC HEPATITIS C
     Dosage: 1.5 MICROGRAM PER KILOGRAM, QW
     Route: 058
     Dates: start: 20121005, end: 20121130
  2. PEGINTRON [Suspect]
     Dosage: 1.5 MICROGRAM PER KILOGRAM, QW
     Route: 058
     Dates: start: 20121215
  3. REBETOL [Suspect]
     Indication: CHRONIC HEPATITIS C
     Dosage: 600 MG, QD
     Route: 048
     Dates: start: 20121005, end: 20121108
  4. REBETOL [Suspect]
     Dosage: 400 UNK, UNK
     Route: 048
     Dates: start: 20121109, end: 20121207
  5. REBETOL [Suspect]
     Dosage: 400 MG, QD
     Route: 048
     Dates: start: 20121218
  6. REBETOL [Suspect]
     Dosage: UNK
  7. TELAVIC [Suspect]
     Indication: CHRONIC HEPATITIS C
     Dosage: 1500 MILLIGRAM, QD
     Route: 048
     Dates: start: 20121005, end: 20121207
  8. MUCOSTA [Concomitant]
     Indication: PROPHYLAXIS
     Dosage: 1 DF, AS NEEDED
     Route: 048
     Dates: start: 20121006
  9. [THERAPY UNSPECIFIED] [Concomitant]
     Dosage: FORMULATION EXT, QS, DAILY DOSE UNKNOWN
     Route: 051
     Dates: start: 20121207
  10. ATARAX P [Concomitant]
     Indication: INSOMNIA
     Dosage: 1 DF, QD
     Route: 048
     Dates: start: 20121207, end: 20121219

REACTIONS (1)
  - Erythema multiforme [Recovering/Resolving]
